FAERS Safety Report 6737910-6 (Version None)
Quarter: 2010Q2

REPORT INFORMATION
  Report Type: 
  Country: None (occurrence: None)
  Receive Date: 20100524
  Receipt Date: 20100513
  Transmission Date: 20101027
  Serious: Yes (Other)
  Sender: FDA-Public Use
  Company Number: PHHY2010JP22038

PATIENT
  Age: 30 Year
  Sex: Female
  Weight: 62 kg

DRUGS (5)
  1. NEORAL [Suspect]
     Dosage: 200 MG PER DAY
  2. NEORAL [Suspect]
     Dosage: 250 MG PER DAY
  3. NEORAL [Suspect]
     Dosage: 100 MG/DAY
  4. PREDNISONE TAB [Concomitant]
     Dosage: 20 MG PER DAY
  5. PREDNISONE TAB [Concomitant]
     Dosage: 15 MG PER DAY

REACTIONS (5)
  - OPTIC NEUROPATHY [None]
  - PUPILLARY REFLEX IMPAIRED [None]
  - SCOTOMA [None]
  - VISION BLURRED [None]
  - VISUAL FIELD DEFECT [None]
